FAERS Safety Report 16561640 (Version 1)
Quarter: 2019Q3

REPORT INFORMATION
  Report Type: Spontaneous
  Country: US (occurrence: US)
  Receive Date: 20190711
  Receipt Date: 20190711
  Transmission Date: 20191004
  Serious: No
  Sender: FDA-Public Use
  Company Number: US-GLAXOSMITHKLINE-US2019123684

PATIENT
  Age: 57 Year
  Sex: Female

DRUGS (1)
  1. TRANSDERM SCOP [Suspect]
     Active Substance: SCOPOLAMINE
     Indication: DEPRESSION
     Dosage: UNK
     Dates: start: 201906, end: 20190704

REACTIONS (6)
  - Drug effective for unapproved indication [Unknown]
  - Application site pruritus [Not Recovered/Not Resolved]
  - Application site erythema [Not Recovered/Not Resolved]
  - Intentional product misuse [Unknown]
  - Application site pain [Not Recovered/Not Resolved]
  - Product use in unapproved indication [Unknown]
